FAERS Safety Report 5644019-1 (Version None)
Quarter: 2008Q2

REPORT INFORMATION
  Report Type: 
  Country: None (occurrence: None)
  Receive Date: 20080131
  Receipt Date: 20071126
  Transmission Date: 20081010
  Serious: Yes (Hospitalization)
  Sender: FDA-Public Use
  Company Number: 163-21880-07111437

PATIENT
  Age: 71 Year
  Sex: Female

DRUGS (8)
  1. REVLIMID [Suspect]
     Indication: MYELODYSPLASTIC SYNDROME
     Dosage: 5 MG, DAILY FOR 21D/28D, ORAL; 10 MG, DAILY FOR 21D/28D, ORAL; 10 MG, ORAL
     Route: 048
     Dates: start: 20070706, end: 20070801
  2. REVLIMID [Suspect]
     Indication: MYELODYSPLASTIC SYNDROME
     Dosage: 5 MG, DAILY FOR 21D/28D, ORAL; 10 MG, DAILY FOR 21D/28D, ORAL; 10 MG, ORAL
     Route: 048
     Dates: start: 20070814, end: 20070903
  3. REVLIMID [Suspect]
     Indication: MYELODYSPLASTIC SYNDROME
     Dosage: 5 MG, DAILY FOR 21D/28D, ORAL; 10 MG, DAILY FOR 21D/28D, ORAL; 10 MG, ORAL
     Route: 048
     Dates: start: 20071110, end: 20071118
  4. REVLIMID [Suspect]
  5. EXJADE [Concomitant]
  6. FOSAMAX PLUS D [Concomitant]
  7. LORATADINE [Concomitant]
  8. ASPIRIN [Concomitant]

REACTIONS (3)
  - FEBRILE NEUTROPENIA [None]
  - LUNG INFECTION PSEUDOMONAL [None]
  - PSEUDOMONAL BACTERAEMIA [None]
